FAERS Safety Report 5085656-5 (Version None)
Quarter: 2006Q3

REPORT INFORMATION
  Report Type: 
  Country: None (occurrence: None)
  Receive Date: 20060817
  Receipt Date: 20060803
  Transmission Date: 20061208
  Serious: Yes (Other)
  Sender: FDA-Public Use
  Company Number: 2005135501

PATIENT
  Age: 44 Year
  Sex: Female
  Weight: 114.3065 kg

DRUGS (2)
  1. BEXTRA [Suspect]
     Indication: ARTHRITIS
     Dosage: 20 MG (10 MG, 2 IN 1 D)
     Dates: start: 20010801, end: 20040901
  2. VIOXX [Suspect]
     Indication: ILL-DEFINED DISORDER
     Dates: start: 20000701, end: 20040901

REACTIONS (2)
  - DEEP VEIN THROMBOSIS [None]
  - PULMONARY EMBOLISM [None]
